FAERS Safety Report 4777590-2 (Version None)
Quarter: 2005Q3

REPORT INFORMATION
  Report Type: 
  Country: None (occurrence: None)
  Receive Date: 20050921
  Receipt Date: 20050907
  Transmission Date: 20060218
  Serious: Yes (Hospitalization)
  Sender: FDA-Public Use
  Company Number: 2005US001067

PATIENT
  Age: 79 Year
  Sex: Female
  Weight: 87 kg

DRUGS (8)
  1. ADENOSCAN [Suspect]
     Indication: SCAN MYOCARDIAL PERFUSION
     Dosage: IV NOS
     Route: 042
     Dates: start: 20050805, end: 20050805
  2. VYTORIN [Concomitant]
  3. HYDROCHLOROTHIAZID [Concomitant]
  4. ALTACE [Concomitant]
  5. ASPIRIN [Concomitant]
  6. IRON (IRON) [Concomitant]
  7. LEVAQUIN [Concomitant]
  8. PROTONIX [Concomitant]

REACTIONS (8)
  - BACTERIAL CULTURE POSITIVE [None]
  - BLOOD PRESSURE DECREASED [None]
  - BODY TEMPERATURE INCREASED [None]
  - DIARRHOEA [None]
  - ESCHERICHIA INFECTION [None]
  - FEELING COLD [None]
  - POOR QUALITY DRUG ADMINISTERED [None]
  - TREMOR [None]
